FAERS Safety Report 4861795-6 (Version None)
Quarter: 2005Q4

REPORT INFORMATION
  Report Type: 
  Country: None (occurrence: None)
  Receive Date: 20051130
  Receipt Date: 20050907
  Transmission Date: 20060501
  Serious: Yes (Other)
  Sender: FDA-Public Use
  Company Number: 2005120392

PATIENT
  Age: 57 Year
  Sex: Female
  Weight: 127.0072 kg

DRUGS (9)
  1. ZYVOX [Suspect]
     Indication: STAPHYLOCOCCAL INFECTION
     Dosage: 1200 MG (600 MG, BID INTERVAL: EVERY DAY), ORAL
     Route: 048
     Dates: start: 20050801, end: 20050809
  2. ZYVOX [Suspect]
     Indication: STAPHYLOCOCCAL INFECTION
     Dosage: 1200 MG (600 MG, BID INTERVAL: EVERY DAY), ORAL
     Route: 048
     Dates: start: 20050812
  3. AMITRIPTYLINE (AMITRIPTYLINE) [Suspect]
     Indication: DEPRESSION
     Dosage: 50 MG (50 MG, QHS INTERVAL: DAILY)
     Dates: end: 20050901
  4. PEPCID [Concomitant]
  5. ALLOPURINOL [Concomitant]
  6. PAXIL [Concomitant]
  7. BENICAR [Concomitant]
  8. PRAVACHOL [Concomitant]
  9. PERCOCET [Concomitant]

REACTIONS (8)
  - AGITATION [None]
  - ANXIETY [None]
  - ASTHENIA [None]
  - DIARRHOEA [None]
  - DIZZINESS [None]
  - FATIGUE [None]
  - INSOMNIA [None]
  - NERVOUSNESS [None]
